FAERS Safety Report 10240129 (Version 4)
Quarter: 2014Q3

REPORT INFORMATION
  Report Type: Spontaneous
  Country: PT (occurrence: PT)
  Receive Date: 20140617
  Receipt Date: 20140725
  Transmission Date: 20150326
  Serious: Yes (Other)
  Sender: FDA-Public Use
  Company Number: PT-ABBVIE-14P-130-1246562-00

PATIENT
  Age: 42 Year
  Sex: Female

DRUGS (1)
  1. HUMIRA [Suspect]
     Active Substance: ADALIMUMAB
     Indication: PRODUCT USED FOR UNKNOWN INDICATION
     Dates: start: 20120720

REACTIONS (5)
  - Odynophagia [Unknown]
  - Neutropenia [Unknown]
  - Respiratory tract infection viral [Unknown]
  - Respiratory tract infection viral [Recovered/Resolved]
  - Upper respiratory tract infection bacterial [Unknown]

NARRATIVE: CASE EVENT DATE: 20130506
